FAERS Safety Report 20719865 (Version 1)
Quarter: 2022Q2

REPORT INFORMATION
  Report Type: Spontaneous
  Country: DE (occurrence: DE)
  Receive Date: 20220418
  Receipt Date: 20220418
  Transmission Date: 20220721
  Serious: Yes (Hospitalization)
  Sender: FDA-Public Use
  Company Number: DE-COLLEGIUM PHARMACEUTICAL, INC.-2022CGM00245

PATIENT
  Age: 80 Year
  Sex: Female

DRUGS (1)
  1. TAPENTADOL [Suspect]
     Active Substance: TAPENTADOL
     Indication: Product used for unknown indication
     Dosage: 1 DOSAGE FORM, EVERY 48 HOURS

REACTIONS (7)
  - Spinal fracture [Unknown]
  - Femur fracture [Unknown]
  - Depressed level of consciousness [Unknown]
  - Somnolence [Unknown]
  - Confusional state [Unknown]
  - Dysphagia [Unknown]
  - Wrong technique in product usage process [Unknown]
